FAERS Safety Report 15091573 (Version 1)
Quarter: 2018Q2

REPORT INFORMATION
  Report Type: Spontaneous
  Country: US (occurrence: US)
  Receive Date: 20180629
  Receipt Date: 20180629
  Transmission Date: 20180711
  Serious: No
  Sender: FDA-Public Use
  Company Number: US-AMGEN-USASP2016161094

PATIENT
  Age: 76 Year
  Sex: Female

DRUGS (2)
  1. BABY ASPIRIN [Concomitant]
     Active Substance: ASPIRIN
     Dosage: 2 DF, QD
  2. PROLIA [Suspect]
     Active Substance: DENOSUMAB
     Indication: OSTEOPOROSIS POSTMENOPAUSAL
     Dosage: 60 MG(PER ML), UNK
     Route: 065
     Dates: start: 20160919

REACTIONS (12)
  - Headache [Unknown]
  - Drug effect incomplete [Unknown]
  - Palpitations [Unknown]
  - Ear pain [Unknown]
  - Vertigo [Unknown]
  - Aphasia [Unknown]
  - Cystitis [Unknown]
  - Dizziness [Unknown]
  - Alopecia [Unknown]
  - Tinnitus [Unknown]
  - Mood altered [Unknown]
  - Confusional state [Unknown]

NARRATIVE: CASE EVENT DATE: 2016
